FAERS Safety Report 17045117 (Version 1)
Quarter: 2019Q4

REPORT INFORMATION
  Report Type: Spontaneous
  Country: US (occurrence: US)
  Receive Date: 20191018
  Receipt Date: 20191018
  Transmission Date: 20200122
  Serious: Yes (Hospitalization)
  Sender: FDA-Public Use
  Company Number: None

PATIENT
  Age: 59 Year
  Sex: Female

DRUGS (14)
  1. METOPROLOL TART [Concomitant]
     Active Substance: METOPROLOL TARTRATE
  2. ACYCLOVIR. [Suspect]
     Active Substance: ACYCLOVIR
  3. OMEPRAZOLE. [Concomitant]
     Active Substance: OMEPRAZOLE
  4. SMZ-TMP [Concomitant]
     Active Substance: SULFAMETHOXAZOLE\TRIMETHOPRIM
  5. GABAPENTIN. [Concomitant]
     Active Substance: GABAPENTIN
  6. CYANOCOBALM INJ [Concomitant]
  7. NORTRIPTYLINE [Concomitant]
     Active Substance: NORTRIPTYLINE
  8. NYSTATIN SUS [Concomitant]
     Active Substance: NYSTATIN
  9. AZYTHROMYCIN [Concomitant]
     Active Substance: AZITHROMYCIN ANHYDROUS
  10. ATORVASTATIN [Concomitant]
     Active Substance: ATORVASTATIN
  11. ESCITALOPRAM [Concomitant]
     Active Substance: ESCITALOPRAM OXALATE
  12. PREDNISONE. [Concomitant]
     Active Substance: PREDNISONE
  13. CYCLOSPORINE MODIFIED [Suspect]
     Active Substance: CYCLOSPORINE
     Indication: LUNG TRANSPLANT
     Route: 048
     Dates: start: 20181013
  14. AMLODIPINE [Concomitant]
     Active Substance: AMLODIPINE BESYLATE

REACTIONS (1)
  - Gastrointestinal tube insertion [None]

NARRATIVE: CASE EVENT DATE: 20191012
